FAERS Safety Report 24956926 (Version 1)
Quarter: 2025Q1

REPORT INFORMATION
  Report Type: Report from Study
  Country: TW (occurrence: TW)
  Receive Date: 20250211
  Receipt Date: 20250211
  Transmission Date: 20250409
  Serious: Yes (Life-Threatening)
  Sender: ELI LILLY AND COMPANY
  Company Number: TW-ELI_LILLY_AND_COMPANY-TW202502004182

PATIENT

DRUGS (1)
  1. OLUMIANT [Suspect]
     Active Substance: BARICITINIB
     Indication: COVID-19
     Route: 065

REACTIONS (3)
  - Rhabdomyolysis [Unknown]
  - Procalcitonin increased [Unknown]
  - Blood creatine phosphokinase increased [Unknown]
